FAERS Safety Report 5822573-4 (Version None)
Quarter: 2008Q3

REPORT INFORMATION
  Report Type: 
  Country: None (occurrence: None)
  Receive Date: 20080722
  Receipt Date: 20080707
  Transmission Date: 20090109
  Serious: Yes (Hospitalization, Other)
  Sender: FDA-Public Use
  Company Number: CIP08001164

PATIENT
  Age: 77 Year
  Sex: Male

DRUGS (6)
  1. FURADANTIN [Suspect]
     Indication: BACTERIA URINE IDENTIFIED
     Dosage: 1 DOSAGE FORM DAILY FOR 2 DAYS, ORAL
     Route: 048
     Dates: start: 20080317, end: 20080101
  2. PREVISCAN(FLUINDIONE) TABLET, 20MG [Suspect]
     Dosage: ORAL
     Route: 048
  3. PROSCAR [Concomitant]
  4. URISPAS [Concomitant]
  5. ALDACTAZINE (SPIRONOLACTONE, ALTIZIDE) [Concomitant]
  6. IRBESARTAN [Concomitant]

REACTIONS (2)
  - DRUG INTERACTION [None]
  - HAEMATURIA [None]
